FAERS Safety Report 21238667 (Version 1)
Quarter: 2022Q3

REPORT INFORMATION
  Report Type: Spontaneous
  Country: US (occurrence: None)
  Receive Date: 20220819
  Receipt Date: 20220819
  Transmission Date: 20221027
  Serious: Yes (unspecified)
  Sender: FDA-Public Use
  Company Number: None

PATIENT
  Age: 50 Year
  Sex: Female
  Weight: 65.5 kg

DRUGS (3)
  1. PACLITAXEL [Suspect]
     Active Substance: PACLITAXEL
     Indication: Breast cancer
     Dosage: FREQUENCY : ONCE;?
     Route: 041
     Dates: start: 20220815, end: 20220815
  2. ALBUTEROL [Concomitant]
     Active Substance: ALBUTEROL
     Dates: start: 20220815, end: 20220815
  3. Hydrocortisone 100 mg IVP [Concomitant]

REACTIONS (4)
  - Dizziness [None]
  - Flushing [None]
  - Rash [None]
  - Oxygen saturation decreased [None]

NARRATIVE: CASE EVENT DATE: 20220815
